FAERS Safety Report 17491874 (Version 2)
Quarter: 2020Q1

REPORT INFORMATION
  Report Type: Spontaneous
  Country: HU (occurrence: HU)
  Receive Date: 20200304
  Receipt Date: 20200309
  Transmission Date: 20200409
  Serious: Yes (Other)
  Sender: FDA-Public Use
  Company Number: HU-ROCHE-2559612

PATIENT
  Age: 66 Year
  Sex: Female

DRUGS (2)
  1. BISOPROLOL [Concomitant]
     Active Substance: BISOPROLOL
  2. RIVOTRIL [Suspect]
     Active Substance: CLONAZEPAM
     Indication: MENTAL DISORDER
     Dosage: STARTED ABOUT 46 YEARS AGO
     Route: 048

REACTIONS (18)
  - Intracranial mass [Unknown]
  - Balance disorder [Unknown]
  - Head injury [Unknown]
  - Decreased appetite [Unknown]
  - Haemorrhoids thrombosed [Unknown]
  - Memory impairment [Unknown]
  - Vaginal haemorrhage [Unknown]
  - Nocturnal fear [Unknown]
  - Haemorrhoids [Unknown]
  - Dizziness [Unknown]
  - Metastases to lung [Unknown]
  - Product dose omission [Unknown]
  - Metastases to breast [Unknown]
  - Fall [Unknown]
  - Brain neoplasm [Unknown]
  - Breast cancer [Unknown]
  - Myocardial infarction [Unknown]
  - Malaise [Unknown]

NARRATIVE: CASE EVENT DATE: 2011
